FAERS Safety Report 9555966 (Version 2)
Quarter: 2014Q1

REPORT INFORMATION
  Report Type: Spontaneous
  Country: CO (occurrence: CO)
  Receive Date: 20130926
  Receipt Date: 20140328
  Transmission Date: 20141002
  Serious: Yes (Other)
  Sender: FDA-Public Use
  Company Number: CO-AMGEN-COLSP2013067375

PATIENT
  Age: 66 Year
  Sex: Female

DRUGS (4)
  1. ENBREL [Suspect]
     Indication: RHEUMATOID ARTHRITIS
     Dosage: 50 MG, WEEKLY
     Route: 058
     Dates: start: 2008
  2. CALTRATE PLUS                      /01438001/ [Concomitant]
     Indication: RHEUMATOID ARTHRITIS
     Dosage: 1X/DAY
     Route: 048
     Dates: start: 2003
  3. NIMESULIDE [Concomitant]
     Indication: RHEUMATOID ARTHRITIS
     Dosage: 15 MG, 1X/DAY
     Route: 048
     Dates: start: 2009
  4. BETALOC                            /00376903/ [Concomitant]
     Dosage: 50 MG, 1X/DAY
     Route: 048
     Dates: start: 201306

REACTIONS (4)
  - Diabetes mellitus [Not Recovered/Not Resolved]
  - Hypothyroidism [Not Recovered/Not Resolved]
  - Injection site erythema [Unknown]
  - Injection site urticaria [Unknown]
